FAERS Safety Report 5877974-5 (Version None)
Quarter: 2008Q3

REPORT INFORMATION
  Report Type: 
  Country: None (occurrence: None)
  Receive Date: 20080909
  Receipt Date: 20080909
  Transmission Date: 20090109
  Serious: Yes (Hospitalization)
  Sender: FDA-Public Use
  Company Number: None

PATIENT
  Sex: Male
  Weight: 69 kg

DRUGS (3)
  1. CISPLATIN [Suspect]
     Dosage: 112 MG
  2. CETUXIMAB [Suspect]
     Dosage: 1216 MG
  3. IRINOTECAN HCL [Suspect]
     Dosage: 244 MG

REACTIONS (12)
  - ABDOMINAL PAIN [None]
  - COLITIS [None]
  - DEHYDRATION [None]
  - DIARRHOEA [None]
  - HEAT STROKE [None]
  - HYPOTENSION [None]
  - ILL-DEFINED DISORDER [None]
  - MENTAL STATUS CHANGES [None]
  - NEUTROPENIA [None]
  - OESOPHAGEAL CANCER METASTATIC [None]
  - THROMBOCYTOPENIA [None]
  - TREATMENT NONCOMPLIANCE [None]
